FAERS Safety Report 8606759-1 (Version None)
Quarter: 2012Q3

REPORT INFORMATION
  Report Type: 
  Country: None (occurrence: None)
  Receive Date: 20120820
  Receipt Date: 20120810
  Transmission Date: 20120928
  Serious: Yes (Other)
  Sender: FDA-Public Use
  Company Number: CN-JHP PHARMACEUTICALS, LLC-JHP201200407

PATIENT
  Age: 25 Year
  Sex: Male

DRUGS (1)
  1. KETALAR [Suspect]
     Indication: DRUG ABUSE
     Dosage: UNK

REACTIONS (3)
  - CYSTITIS INTERSTITIAL [None]
  - ALANINE AMINOTRANSFERASE INCREASED [None]
  - HYDRONEPHROSIS [None]
